FAERS Safety Report 24528089 (Version 2)
Quarter: 2024Q4

REPORT INFORMATION
  Report Type: Spontaneous
  Country: US (occurrence: US)
  Receive Date: 20241021
  Receipt Date: 20241126
  Transmission Date: 20250114
  Serious: No
  Sender: GLAXOSMITHKLINE
  Company Number: US-GSK-US2024126182

PATIENT
  Sex: Male

DRUGS (2)
  1. BREO ELLIPTA [Suspect]
     Active Substance: FLUTICASONE FUROATE\VILANTEROL TRIFENATATE
     Indication: Product used for unknown indication
     Dosage: 1 DF, QD (BREO ELLIPTA 100-25MCG)
     Route: 048
     Dates: start: 202310
  2. PRAMIPEXOLE [Suspect]
     Active Substance: PRAMIPEXOLE\PRAMIPEXOLE DIHYDROCHLORIDE
     Indication: Restless legs syndrome
     Dosage: UNK

REACTIONS (5)
  - Dyspnoea [Unknown]
  - Muscle spasms [Unknown]
  - Restless legs syndrome [Unknown]
  - Drug tolerance [Unknown]
  - Drug effect less than expected [Unknown]
